FAERS Safety Report 15684501 (Version 1)
Quarter: 2018Q4

REPORT INFORMATION
  Report Type: Spontaneous
  Country: FR (occurrence: FR)
  Receive Date: 20181204
  Receipt Date: 20181204
  Transmission Date: 20190205
  Serious: Yes (Hospitalization, Other)
  Sender: FDA-Public Use
  Company Number: FR-MYLANLABS-2018M1088045

PATIENT
  Age: 67 Year
  Sex: Female

DRUGS (10)
  1. MELPHALAN. [Suspect]
     Active Substance: MELPHALAN
     Indication: NON-HODGKIN^S LYMPHOMA
     Dosage: ON DAY -2 (BEAM THERAPY)
     Route: 065
  2. BENDAMUSTINE HYDROCHLORIDE. [Suspect]
     Active Substance: BENDAMUSTINE HYDROCHLORIDE
     Indication: NON-HODGKIN^S LYMPHOMA
     Dosage: ON DAY -7 AND DAY -6 (BEAM THERAPY)
     Route: 065
  3. ARACYTINE [Suspect]
     Active Substance: CYTARABINE
     Indication: NON-HODGKIN^S LYMPHOMA
     Dosage: 1 G/M2 EVERY 12 HOURS ON DAY -6 TO DAY -3 (BEAM THERAPY)
     Route: 065
  4. RITUXIMAB. [Suspect]
     Active Substance: RITUXIMAB
     Indication: NON-HODGKIN^S LYMPHOMA
     Dosage: PART OF R-DHAO THERAPY
     Route: 065
  5. MOZOBIL [Concomitant]
     Active Substance: PLERIXAFOR
     Route: 065
  6. CYTARABINE. [Suspect]
     Active Substance: CYTARABINE
     Indication: NON-HODGKIN^S LYMPHOMA
     Dosage: 2 G/M2 EVERY 12 HOURS; PART OF R-DHAO THERAPY
     Route: 065
  7. ETOPOSIDE. [Suspect]
     Active Substance: ETOPOSIDE
     Indication: NON-HODGKIN^S LYMPHOMA
     Dosage: FROM DAY -6 TO DAY -3 (BEAM THERAPY)
     Route: 065
  8. OXALIPLATIN. [Suspect]
     Active Substance: OXALIPLATIN
     Indication: NON-HODGKIN^S LYMPHOMA
     Dosage: PART OF R-DHAO THERAPY
     Route: 065
  9. DEXAMETHASONE. [Suspect]
     Active Substance: DEXAMETHASONE
     Indication: NON-HODGKIN^S LYMPHOMA
     Dosage: PART OF R-DHAO THERAPY
     Route: 065
  10. IMMUNOGLOBULIN                     /00025201/ [Concomitant]
     Active Substance: HUMAN IMMUNOGLOBULIN G
     Route: 042

REACTIONS (7)
  - Dehydration [Unknown]
  - Toxicity to various agents [Unknown]
  - Diarrhoea [Unknown]
  - Acute kidney injury [Unknown]
  - Venoocclusive liver disease [Unknown]
  - Vomiting [Unknown]
  - Ascites [Recovered/Resolved]
